FAERS Safety Report 19978045 (Version 1)
Quarter: 2021Q4

REPORT INFORMATION
  Report Type: Spontaneous
  Country: US (occurrence: US)
  Receive Date: 20211020
  Receipt Date: 20211020
  Transmission Date: 20220303
  Serious: No
  Sender: FDA-Public Use
  Company Number: None

PATIENT
  Age: 44 Year
  Sex: Female

DRUGS (1)
  1. OTEZLA [Suspect]
     Active Substance: APREMILAST
     Indication: Psoriatic arthropathy
     Route: 048
     Dates: start: 20200903

REACTIONS (4)
  - Pruritus [None]
  - Burning sensation [None]
  - Erythema [None]
  - Condition aggravated [None]

NARRATIVE: CASE EVENT DATE: 20210701
